FAERS Safety Report 25670812 (Version 2)
Quarter: 2025Q4

REPORT INFORMATION
  Report Type: Spontaneous
  Country: CA (occurrence: CA)
  Receive Date: 20250812
  Receipt Date: 20251008
  Transmission Date: 20260117
  Serious: Yes (Other)
  Sender: PFIZER
  Company Number: CA-PFIZER INC-202300352146

PATIENT
  Age: 22 Year
  Sex: Female

DRUGS (3)
  1. RUXIENCE [Suspect]
     Active Substance: RITUXIMAB-PVVR
     Indication: Multiple sclerosis
     Dosage: 1000 MG, DAY 1 AND DAY 15 THEN 1000 MG EVERY 6 MONTHS
     Route: 042
     Dates: start: 20240203, end: 20240216
  2. RUXIENCE [Suspect]
     Active Substance: RITUXIMAB-PVVR
     Dosage: 1000 MG, DAY 1 AND DAY 15 THEN 1000 MG EVERY 6 MONTHS
     Route: 042
     Dates: start: 20240819
  3. RUXIENCE [Suspect]
     Active Substance: RITUXIMAB-PVVR
     Dosage: 1000 MG, EVERY 6 MONTHS
     Route: 042
     Dates: start: 20250324

REACTIONS (2)
  - Thyroidectomy [Unknown]
  - Off label use [Unknown]

NARRATIVE: CASE EVENT DATE: 20240203
